FAERS Safety Report 9620813 (Version 2)
Quarter: 2013Q4

REPORT INFORMATION
  Report Type: Spontaneous
  Country: US (occurrence: US)
  Receive Date: 20131015
  Receipt Date: 20131029
  Transmission Date: 20140711
  Serious: Yes (Other)
  Sender: FDA-Public Use
  Company Number: US-BRISTOL-MYERS SQUIBB COMPANY-19412808

PATIENT
  Age: 55 Year
  Sex: Male

DRUGS (4)
  1. ABILIFY [Suspect]
     Indication: SCHIZOPHRENIA
     Route: 048
  2. ABILIFY MAINTENA INJECTION [Suspect]
     Indication: SCHIZOPHRENIA
     Dosage: DOSE INC TO 400MG AFTER 28DYS OF 2ND INJECTION TAKING ONCE IN 28DYS
     Route: 030
     Dates: start: 2013
  3. NAVANE [Concomitant]
  4. ZYPREXA [Concomitant]

REACTIONS (1)
  - Paranoia [Unknown]
